FAERS Safety Report 6322907-0 (Version None)
Quarter: 2009Q3

REPORT INFORMATION
  Report Type: 
  Country: None (occurrence: None)
  Receive Date: 20090824
  Receipt Date: 20090402
  Transmission Date: 20100115
  Serious: No
  Sender: FDA-Public Use
  Company Number: US-ABBOTT-09P-163-0559046-00

PATIENT
  Sex: Female
  Weight: 56.296 kg

DRUGS (4)
  1. NIASPAN [Suspect]
     Indication: BLOOD CHOLESTEROL INCREASED
     Route: 048
     Dates: start: 20081101, end: 20090101
  2. NIASPAN [Suspect]
  3. NIASPAN [Suspect]
     Indication: BLOOD CHOLESTEROL INCREASED
     Dates: start: 20090101
  4. ZETIA [Suspect]
     Indication: BLOOD CHOLESTEROL INCREASED
     Dates: start: 20090201

REACTIONS (5)
  - DIARRHOEA [None]
  - FLUSHING [None]
  - HEADACHE [None]
  - HEPATIC ENZYME INCREASED [None]
  - PALPITATIONS [None]
